FAERS Safety Report 23137163 (Version 1)
Quarter: 2023Q4

REPORT INFORMATION
  Report Type: Spontaneous
  Country: US (occurrence: US)
  Receive Date: 20231102
  Receipt Date: 20231102
  Transmission Date: 20240109
  Serious: No
  Sender: FDA-Public Use
  Company Number: US-BRISTOL-MYERS SQUIBB COMPANY-2023-053557

PATIENT
  Age: 90 Year
  Sex: Female

DRUGS (1)
  1. REVLIMID [Suspect]
     Active Substance: LENALIDOMIDE
     Indication: Plasma cell myeloma
     Dosage: FREQ: QD FOR 14 DAYS ON 7 DAYS OFF
     Route: 048
     Dates: start: 202303

REACTIONS (3)
  - Diarrhoea [Unknown]
  - Product supply issue [Unknown]
  - Off label use [Unknown]

NARRATIVE: CASE EVENT DATE: 20230413
